FAERS Safety Report 9821052 (Version 1)
Quarter: 2014Q1

REPORT INFORMATION
  Report Type: Spontaneous
  Country: FR (occurrence: FR)
  Receive Date: 20140116
  Receipt Date: 20140116
  Transmission Date: 20141002
  Serious: Yes (Hospitalization)
  Sender: FDA-Public Use
  Company Number: FR-PFIZER INC-2014007311

PATIENT
  Age: 83 Year
  Sex: Male

DRUGS (3)
  1. DALACINE [Suspect]
     Indication: OSTEITIS
     Dosage: 300 MG, 3X/DAY
     Route: 048
     Dates: start: 20131115, end: 20131121
  2. CIPROFLOXACIN MYLAN [Suspect]
     Indication: URINARY TRACT INFECTION
     Dosage: 500 MG, 2X/DAY
     Route: 048
     Dates: start: 20131115, end: 20131121
  3. BACTRIM FORTE [Suspect]
     Indication: OSTEITIS
     Dosage: 800 MG, 3X/DAY
     Route: 048
     Dates: start: 20131115, end: 20131118

REACTIONS (2)
  - Rash macular [Recovered/Resolved]
  - Pyrexia [Recovered/Resolved]
